FAERS Safety Report 25051000 (Version 1)
Quarter: 2025Q1

REPORT INFORMATION
  Report Type: Spontaneous
  Country: US (occurrence: None)
  Receive Date: 20250307
  Receipt Date: 20250307
  Transmission Date: 20250409
  Serious: Yes (Life-Threatening, Hospitalization, Disabling, Other)
  Sender: FDA-CTU
  Company Number: None

PATIENT
  Age: 68 Year
  Sex: Female
  Weight: 64.35 kg

DRUGS (7)
  1. SYNTHROID [Suspect]
     Active Substance: LEVOTHYROXINE SODIUM
     Indication: Hypothyroidism
     Route: 048
  2. SYNTHROID [Concomitant]
     Active Substance: LEVOTHYROXINE SODIUM
  3. MAGNESIUM [Concomitant]
     Active Substance: MAGNESIUM
  4. cinnamon tumeric [Concomitant]
  5. coco powder [Concomitant]
  6. pepper [Concomitant]
  7. HONEY [Concomitant]
     Active Substance: HONEY

REACTIONS (7)
  - Alopecia [None]
  - Hot flush [None]
  - Dry skin [None]
  - Weight increased [None]
  - Feeling abnormal [None]
  - Disturbance in attention [None]
  - Sleep disorder [None]

NARRATIVE: CASE EVENT DATE: 20221118
